FAERS Safety Report 16817360 (Version 5)
Quarter: 2023Q1

REPORT INFORMATION
  Report Type: Report from Study
  Country: DE (occurrence: DE)
  Receive Date: 20190917
  Receipt Date: 20230315
  Transmission Date: 20230417
  Serious: Yes (Life-Threatening, Hospitalization)
  Sender: FDA-Public Use
  Company Number: None

PATIENT

DRUGS (2)
  1. CABOZANTINIB [Suspect]
     Active Substance: CABOZANTINIB
     Indication: Renal cell carcinoma
     Dosage: 60 MG, QD
     Route: 048
     Dates: start: 20190425, end: 20190911
  2. ALLOPURINOL [Concomitant]
     Active Substance: ALLOPURINOL
     Indication: Gout
     Route: 048
     Dates: start: 20100101

REACTIONS (4)
  - Urinary tract infection [Unknown]
  - Renal failure [Recovered/Resolved]
  - Sepsis [Recovered/Resolved with Sequelae]
  - Skin lesion [Recovered/Resolved with Sequelae]

NARRATIVE: CASE EVENT DATE: 20190506
